FAERS Safety Report 21977827 (Version 1)
Quarter: 2023Q1

REPORT INFORMATION
  Report Type: Spontaneous
  Country: US (occurrence: US)
  Receive Date: 20230210
  Receipt Date: 20230210
  Transmission Date: 20230418
  Serious: Yes (Death, Hospitalization, Other)
  Sender: FDA-Public Use
  Company Number: US-MYLANLABS-2023M1015011

PATIENT
  Age: 27 Year
  Sex: Male

DRUGS (5)
  1. CISPLATIN [Suspect]
     Active Substance: CISPLATIN
     Indication: Mixed hepatocellular cholangiocarcinoma
     Dosage: 20 MILLIGRAM/SQ. METER, CYCLE, ON DAYS 1 AND 8 OF 21-DAY CYCLE
     Route: 042
  2. GEMCITABINE [Suspect]
     Active Substance: GEMCITABINE
     Indication: Mixed hepatocellular cholangiocarcinoma
     Dosage: 800 MILLIGRAM/SQ. METER, CYCLE, ON DAYS 1 AND 8 OF 21-DAY CYCLE
     Route: 042
  3. IODINE [Concomitant]
     Active Substance: IODINE
     Indication: Scan with contrast
     Dosage: UNK
     Route: 042
  4. VALPROATE SODIUM [Concomitant]
     Active Substance: VALPROATE SODIUM
     Indication: Seizure
     Dosage: 1000 MILLIGRAM, QD
     Route: 065
  5. LEVETIRACETAM [Concomitant]
     Active Substance: LEVETIRACETAM
     Indication: Seizure
     Dosage: 500 MILLIGRAM, BID
     Route: 065

REACTIONS (2)
  - Drug ineffective [Fatal]
  - Myeloid leukaemia [Unknown]
